FAERS Safety Report 9914124 (Version 2)
Quarter: 2014Q1

REPORT INFORMATION
  Report Type: Spontaneous
  Country: RU (occurrence: RU)
  Receive Date: 20140220
  Receipt Date: 20140220
  Transmission Date: 20141002
  Serious: Yes (Other)
  Sender: FDA-Public Use
  Company Number: RU-EISAI INC-E7389-04741-SPO-RU

PATIENT
  Age: 39 Year
  Sex: Female
  Weight: 78 kg

DRUGS (1)
  1. HALAVEN [Suspect]
     Indication: BREAST CANCER METASTATIC
     Dosage: 2 MG
     Route: 041
     Dates: start: 20131218, end: 20140116

REACTIONS (4)
  - Leukocytosis [Recovering/Resolving]
  - Metastases to skin [Recovering/Resolving]
  - Malignant neoplasm progression [Recovering/Resolving]
  - Body temperature increased [Recovering/Resolving]
